FAERS Safety Report 13730481 (Version 3)
Quarter: 2018Q1

REPORT INFORMATION
  Report Type: Spontaneous
  Country: US (occurrence: US)
  Receive Date: 20170707
  Receipt Date: 20180314
  Transmission Date: 20180508
  Serious: No
  Sender: FDA-Public Use
  Company Number: US-TURING PHARMACEUTICALS-2017TNG00034

PATIENT
  Sex: Male
  Weight: 89.8 kg

DRUGS (8)
  1. ATORVASTATIN [Concomitant]
     Active Substance: ATORVASTATIN
  2. LEUCOVORIN CALCIUM. [Concomitant]
     Active Substance: LEUCOVORIN CALCIUM
  3. DARAPRIM [Suspect]
     Active Substance: PYRIMETHAMINE
     Dosage: 50 MG, 1X/DAY
     Route: 048
     Dates: start: 201706, end: 2017
  4. LEVETIRACETAM. [Concomitant]
     Active Substance: LEVETIRACETAM
  5. SMZ/TMP [Concomitant]
     Active Substance: SULFAMETHOXAZOLE\TRIMETHOPRIM
  6. DARAPRIM [Suspect]
     Active Substance: PYRIMETHAMINE
     Indication: TOXOPLASMOSIS
     Dosage: 50 MG, 1X/DAY
     Route: 048
     Dates: start: 20170216, end: 201705
  7. AZITHROMYCIN ANHYDROUS. [Concomitant]
     Active Substance: AZITHROMYCIN ANHYDROUS
  8. PANTOPRAZOLE [Concomitant]
     Active Substance: PANTOPRAZOLE

REACTIONS (2)
  - Rash [Not Recovered/Not Resolved]
  - Drug dose omission [Unknown]

NARRATIVE: CASE EVENT DATE: 2017
